FAERS Safety Report 14455867 (Version 2)
Quarter: 2018Q2

REPORT INFORMATION
  Report Type: Other
  Country: CA (occurrence: CA)
  Receive Date: 20180130
  Receipt Date: 20180422
  Transmission Date: 20180711
  Serious: Yes (Other)
  Sender: FDA-Public Use
  Company Number: CA-APOTEX-2018AP005585

PATIENT
  Age: 44 Year
  Sex: Female

DRUGS (1)
  1. SALBUTAMOL [Suspect]
     Active Substance: ALBUTEROL
     Indication: PRODUCT USED FOR UNKNOWN INDICATION
     Dosage: UNK
     Route: 065

REACTIONS (9)
  - Aural polyp [Unknown]
  - Candida infection [Unknown]
  - Tooth disorder [Unknown]
  - Nasal polyps [Unknown]
  - Auditory disorder [Unknown]
  - Osteoarthritis [Unknown]
  - Fungal pharyngitis [Unknown]
  - Diverticulitis [Unknown]
  - Osteoporosis [Unknown]
